FAERS Safety Report 8136064-1 (Version None)
Quarter: 2012Q1

REPORT INFORMATION
  Report Type: 
  Country: None (occurrence: None)
  Receive Date: 20120214
  Receipt Date: 20120130
  Transmission Date: 20120608
  Serious: Yes (Hospitalization)
  Sender: FDA-Public Use
  Company Number: IT-WATSON-2012-01933

PATIENT
  Age: 36 Year
  Sex: Female
  Weight: 49 kg

DRUGS (8)
  1. METFORMIN HCL [Suspect]
     Indication: HYPERTHYROIDISM
  2. METFORMIN HCL [Suspect]
     Indication: OEDEMA PERIPHERAL
  3. AMILORIDE-HCTZ (WATSON LABORATORIES) [Suspect]
     Indication: INSULIN RESISTANCE
     Dosage: HCTZ 5 MG + AMILORIDE 50 MG/^DIE^
     Route: 065
  4. AMILORIDE-HCTZ (WATSON LABORATORIES) [Suspect]
     Indication: HYPERTHYROIDISM
  5. BISACODYL [Suspect]
  6. METFORMIN HCL [Suspect]
     Indication: INSULIN RESISTANCE
     Route: 065
  7. AMILORIDE-HCTZ (WATSON LABORATORIES) [Suspect]
     Indication: OEDEMA PERIPHERAL
  8. LEVOTHYROXINE SODIUM [Suspect]

REACTIONS (6)
  - RENAL FAILURE [None]
  - LACTIC ACIDOSIS [None]
  - HYPONATRAEMIA [None]
  - HYPOCALCAEMIA [None]
  - HYPOKALAEMIA [None]
  - INTENTIONAL DRUG MISUSE [None]
